FAERS Safety Report 8456228 (Version 7)
Quarter: 2015Q1

REPORT INFORMATION
  Report Type: Report from Study
  Country: US (occurrence: US)
  Receive Date: 20120313
  Receipt Date: 20150105
  Transmission Date: 20150721
  Serious: Yes (Life-Threatening)
  Sender: FDA-Public Use
  Company Number: US-JNJFOC-20120302397

PATIENT
  Age: 73 Year
  Sex: Female
  Weight: 68.04 kg

DRUGS (1)
  1. INFLIXIMAB, RECOMBINANT [Suspect]
     Active Substance: INFLIXIMAB
     Indication: PSORIASIS
     Route: 042
     Dates: start: 200502, end: 200612

REACTIONS (1)
  - Breast cancer metastatic [Unknown]

NARRATIVE: CASE EVENT DATE: 20120201
